FAERS Safety Report 5543110-8 (Version None)
Quarter: 2007Q4

REPORT INFORMATION
  Report Type: 
  Country: None (occurrence: None)
  Receive Date: 20071210
  Receipt Date: 20071025
  Transmission Date: 20080405
  Serious: Yes (Other)
  Sender: FDA-Public Use
  Company Number: US-PFIZER INC-2007102690

PATIENT
  Age: 7 Year
  Sex: Female

DRUGS (2)
  1. ZYRTEC [Suspect]
     Indication: POSTNASAL DRIP
  2. ZYRTEC [Suspect]
     Indication: HYPERSENSITIVITY

REACTIONS (3)
  - FEELING ABNORMAL [None]
  - SCHIZOPHRENIA [None]
  - UNEVALUABLE EVENT [None]
